FAERS Safety Report 22134560 (Version 1)
Quarter: 2023Q1

REPORT INFORMATION
  Report Type: Spontaneous
  Country: US (occurrence: None)
  Receive Date: 20230322
  Receipt Date: 20230322
  Transmission Date: 20230418
  Serious: Yes (Hospitalization)
  Sender: FDA-Public Use
  Company Number: None

PATIENT
  Age: 22 Year
  Sex: Male

DRUGS (1)
  1. SKYRIZI [Suspect]
     Active Substance: RISANKIZUMAB-RZAA
     Indication: Psoriasis
     Dosage: 150MG/ML  EVERY 3 MONTHS SQ?
     Route: 058
     Dates: start: 20210728

REACTIONS (2)
  - Sinusitis [None]
  - Pneumonia [None]

NARRATIVE: CASE EVENT DATE: 20230310
